FAERS Safety Report 6336463-4 (Version None)
Quarter: 2009Q3

REPORT INFORMATION
  Report Type: 
  Country: None (occurrence: None)
  Receive Date: 20090901
  Receipt Date: 20090825
  Transmission Date: 20100115
  Serious: Yes (Congenital Anomaly)
  Sender: FDA-Public Use
  Company Number: A0797398A

PATIENT
  Sex: Male

DRUGS (2)
  1. PAXIL [Suspect]
     Dates: start: 19960101, end: 19990101
  2. TEGRETOL [Concomitant]

REACTIONS (3)
  - DRUG EXPOSURE DURING PREGNANCY [None]
  - TRANSPOSITION OF THE GREAT VESSELS [None]
  - VENTRICULAR SEPTAL DEFECT [None]
